FAERS Safety Report 21976984 (Version 1)
Quarter: 2023Q1

REPORT INFORMATION
  Report Type: Spontaneous
  Country: US (occurrence: US)
  Receive Date: 20230210
  Receipt Date: 20230210
  Transmission Date: 20230418
  Serious: No
  Sender: FDA-Public Use
  Company Number: US-SA-SAC20230209000586

PATIENT
  Age: 47 Year
  Sex: Male

DRUGS (1)
  1. DUPIXENT [Suspect]
     Active Substance: DUPILUMAB
     Indication: Nasal polyps
     Dosage: 300MG, OTHER
     Route: 058
     Dates: start: 202211

REACTIONS (3)
  - Dry skin [Recovered/Resolved]
  - Rhinorrhoea [Unknown]
  - Product dose omission issue [Unknown]
